FAERS Safety Report 14012189 (Version 1)
Quarter: 2017Q3

REPORT INFORMATION
  Report Type: Spontaneous
  Country: US (occurrence: US)
  Receive Date: 20170926
  Receipt Date: 20170926
  Transmission Date: 20171128
  Serious: Yes (Other)
  Sender: FDA-Public Use
  Company Number: US-PFIZER INC-2017411774

PATIENT
  Age: 62 Year
  Sex: Female

DRUGS (8)
  1. ADRIAMYCIN [Concomitant]
     Active Substance: DOXORUBICIN HYDROCHLORIDE
     Indication: BREAST CANCER STAGE II
     Dosage: 60 MG/M2, CYCLIC (EVERY 2 WEEKS FOR 4 CYCLES)
  2. PEGFILGRASTIM [Concomitant]
     Active Substance: PEGFILGRASTIM
     Indication: BREAST CANCER STAGE II
     Dosage: UNK, CYCLIC
  3. CYCLOPHOSPHAMIDE. [Concomitant]
     Active Substance: CYCLOPHOSPHAMIDE
     Indication: BREAST CANCER STAGE II
     Dosage: 600 MG/M2, CYCLIC (EVERY 2 WEEKS FOR 4 CYCLES)
  4. CARBOPLATIN. [Suspect]
     Active Substance: CARBOPLATIN
     Indication: BREAST CANCER STAGE II
     Dosage: 6 MG/ML/MIN, CYCLIC (ADJUSTED FOR AN AREA UNDER THE CURVE) EVERY 3 WEEKS FOR 4 CYCLES
  5. CARBOPLATIN. [Suspect]
     Active Substance: CARBOPLATIN
     Dosage: UNK, CYCLIC (2 DOSES)
  6. TAXOL [Suspect]
     Active Substance: PACLITAXEL
     Dosage: 80 MG/M2, CYCLIC
  7. TAXOL [Suspect]
     Active Substance: PACLITAXEL
     Indication: BREAST CANCER STAGE II
     Dosage: UNK, CYCLIC (12 WEEKS)
  8. TAXOL [Suspect]
     Active Substance: PACLITAXEL
     Dosage: UNK CYCLIC (6 CYCLES OF WEEKLY TAXOL)

REACTIONS (1)
  - Colitis ischaemic [Recovered/Resolved]
